FAERS Safety Report 23788118 (Version 2)
Quarter: 2024Q3

REPORT INFORMATION
  Report Type: Spontaneous
  Country: FR (occurrence: FR)
  Receive Date: 20240426
  Receipt Date: 20240701
  Transmission Date: 20241017
  Serious: Yes (Hospitalization)
  Sender: MYLAN
  Company Number: None

PATIENT
  Age: 36 Year
  Sex: Female
  Weight: 62 kg

DRUGS (3)
  1. ACETAMINOPHEN [Suspect]
     Active Substance: ACETAMINOPHEN
     Indication: Pain
     Dosage: 3 GRAM, QD
     Route: 048
     Dates: start: 20240311, end: 20240314
  2. METHOTREXATE SODIUM [Suspect]
     Active Substance: METHOTREXATE SODIUM
     Indication: Connective tissue disorder
     Dosage: 12.5 MILLIGRAM 1 TOTAL
     Route: 058
     Dates: start: 20240311, end: 20240311
  3. ISRADIPINE [Suspect]
     Active Substance: ISRADIPINE
     Indication: Connective tissue disorder
     Dosage: 2 DOSAGE FORM 1 TOTAL
     Route: 048
     Dates: start: 20240311, end: 20240311

REACTIONS (2)
  - Hepatitis acute [Recovered/Resolved]
  - Renal tubular necrosis [Recovering/Resolving]

NARRATIVE: CASE EVENT DATE: 20240314
